FAERS Safety Report 20653141 (Version 1)
Quarter: 2022Q1

REPORT INFORMATION
  Report Type: Spontaneous
  Country: DE (occurrence: DE)
  Receive Date: 20220330
  Receipt Date: 20220330
  Transmission Date: 20220423
  Serious: Yes (Death, Life-Threatening, Hospitalization, Other)
  Sender: FDA-Public Use
  Company Number: None

PATIENT
  Age: 74 Year
  Sex: Male
  Weight: 104 kg

DRUGS (1)
  1. SOTROVIMAB [Suspect]
     Active Substance: SOTROVIMAB
     Indication: COVID-19
     Dosage: UNK
     Route: 065
     Dates: start: 20220223

REACTIONS (9)
  - Basal ganglia haemorrhage [Fatal]
  - Systemic inflammatory response syndrome [Fatal]
  - COVID-19 pneumonia [Fatal]
  - Somnolence [Fatal]
  - Vomiting [Fatal]
  - Nausea [Fatal]
  - General physical health deterioration [Fatal]
  - Fatigue [Fatal]
  - Fibrin D dimer increased [Fatal]

NARRATIVE: CASE EVENT DATE: 20220224
